FAERS Safety Report 19905049 (Version 1)
Quarter: 2021Q3

REPORT INFORMATION
  Report Type: Report from Study
  Country: FR (occurrence: FR)
  Receive Date: 20210930
  Receipt Date: 20210930
  Transmission Date: 20211014
  Serious: Yes (Life-Threatening)
  Sender: FDA-Public Use
  Company Number: FR-SERVIER-S19011126

PATIENT

DRUGS (15)
  1. TN UNSPECIFIED [PREDNISOLONE SODIUM PHOSPHATE] [Suspect]
     Active Substance: PREDNISOLONE SODIUM PHOSPHATE
     Indication: ACUTE LYMPHOCYTIC LEUKAEMIA
     Dosage: 28 MG QD FROM D8 TO D28
     Route: 042
     Dates: start: 20190726, end: 20190818
  2. PEGASPARGASE [Suspect]
     Active Substance: PEGASPARGASE
     Indication: ACUTE LYMPHOCYTIC LEUKAEMIA
     Dosage: 1200 IU, ON D12, D29
     Route: 042
     Dates: start: 20190730
  3. PEGASPARGASE [Suspect]
     Active Substance: PEGASPARGASE
     Dosage: 1200 IU. ON D15 AND 43
     Route: 042
     Dates: start: 20190925, end: 20191022
  4. TN UNSPECIFIED (VINCRISTINE SULFATE) [Suspect]
     Active Substance: VINCRISTINE SULFATE
     Indication: ACUTE LYMPHOCYTIC LEUKAEMIA
     Dosage: 0.7 MG, ON D8, D15, D22, D29
     Route: 042
     Dates: start: 20190726, end: 20190815
  5. TN UNSPECIFIED [METHOTREXATE SODIUM] [Suspect]
     Active Substance: METHOTREXATE SODIUM
     Indication: ACUTE LYMPHOCYTIC LEUKAEMIA
     Dosage: 8 MG, ON D9, D13, D18, D24
     Route: 037
     Dates: start: 20190727, end: 20190817
  6. TN UNSPECIFIED [CYTARABINE] [Suspect]
     Active Substance: CYTARABINE
     Dosage: 35 MG, D3 TO D6, D10 TO D13, D31 TO D34, D38 TO D41
     Route: 042
     Dates: start: 20190906, end: 20191020
  7. TN UNSPECIFIED [HYDROCORTISONE BUTYRATE] [Suspect]
     Active Substance: HYDROCORTISONE BUTYRATE
     Dosage: 10 MG, ON D3 AND D31
     Route: 037
     Dates: start: 20190906, end: 20191004
  8. TN UNSPECIFIED [CYTARABINE] [Suspect]
     Active Substance: CYTARABINE
     Dosage: 20 MG. ON D3 AND 31
     Route: 037
     Dates: start: 20190906, end: 20191004
  9. TN UNSPECIFIED [HYDROCORTISONE BUTYRATE] [Suspect]
     Active Substance: HYDROCORTISONE BUTYRATE
     Indication: ACUTE LYMPHOCYTIC LEUKAEMIA
     Dosage: 10 MG, ON D9, D13, D18, D24
     Route: 037
     Dates: start: 20190727, end: 20190817
  10. TN UNSPECIFIED (VINCRISTINE SULFATE) [Suspect]
     Active Substance: VINCRISTINE SULFATE
     Dosage: 0.71 MG, ON D15, 43, 50
     Route: 042
     Dates: start: 20190925, end: 20191029
  11. TN UNSPECIFIED (DAUNORUBICIN) [Suspect]
     Active Substance: DAUNORUBICIN
     Indication: ACUTE LYMPHOCYTIC LEUKAEMIA
     Dosage: 14 MG, ON D8, D15, D22
     Route: 042
     Dates: start: 20190726, end: 20190809
  12. TN UNSPECIFIED [CYCLOPHOSPHAMIDE] [Suspect]
     Active Substance: CYCLOPHOSPHAMIDE
     Indication: ACUTE LYMPHOCYTIC LEUKAEMIA
     Dosage: 480 MG, ON D1 AND D29
     Route: 042
     Dates: start: 20190904, end: 20191002
  13. TN UNSPECIFIED [MERCAPTOPURINE] [Suspect]
     Active Substance: MERCAPTOPURINE
     Indication: ACUTE LYMPHOCYTIC LEUKAEMIA
     Dosage: 28 MG
     Route: 048
  14. TN UNSPECIFIED [METHOTREXATE SODIUM] [Suspect]
     Active Substance: METHOTREXATE SODIUM
     Dosage: 8 MG. ON D3 AND D31
     Route: 037
     Dates: start: 20190906, end: 20191004
  15. TN UNSPECIFIED [CYTARABINE] [Suspect]
     Active Substance: CYTARABINE
     Indication: ACUTE LYMPHOCYTIC LEUKAEMIA
     Dosage: 20 MG, ON D9, D13, D18, D24
     Route: 037
     Dates: start: 20190727, end: 20190817

REACTIONS (1)
  - Bronchopulmonary aspergillosis [Recovered/Resolved]

NARRATIVE: CASE EVENT DATE: 20190816
